FAERS Safety Report 24547120 (Version 2)
Quarter: 2024Q4

REPORT INFORMATION
  Report Type: Spontaneous
  Country: US (occurrence: US)
  Receive Date: 20241025
  Receipt Date: 20241105
  Transmission Date: 20250115
  Serious: No
  Sender: ROCHE
  Company Number: US-ROCHE-10000115336

PATIENT

DRUGS (1)
  1. OCREVUS [Suspect]
     Active Substance: OCRELIZUMAB
     Indication: Product used for unknown indication
     Route: 065

REACTIONS (6)
  - Brain fog [Unknown]
  - Migraine [Unknown]
  - Muscle spasms [Unknown]
  - Muscle spasms [Unknown]
  - Gait disturbance [Unknown]
  - Hypoaesthesia [Unknown]
